FAERS Safety Report 13658621 (Version 1)
Quarter: 2017Q2

REPORT INFORMATION
  Report Type: Spontaneous
  Country: US (occurrence: US)
  Receive Date: 20170615
  Receipt Date: 20170615
  Transmission Date: 20170830
  Serious: Yes (Life-Threatening, Other)
  Sender: FDA-Public Use
  Company Number: None

PATIENT
  Age: 43 Year
  Sex: Male
  Weight: 81 kg

DRUGS (4)
  1. REVLIMID [Concomitant]
     Active Substance: LENALIDOMIDE
  2. DEXAMETHASONE. [Concomitant]
     Active Substance: DEXAMETHASONE
  3. ELOTUZUMAB. [Concomitant]
     Active Substance: ELOTUZUMAB
  4. REMICADE [Suspect]
     Active Substance: INFLIXIMAB
     Indication: CROHN^S DISEASE
     Route: 042
     Dates: start: 20100915, end: 20160601

REACTIONS (5)
  - Plasmacytoma [None]
  - Musculoskeletal pain [None]
  - Plasma cell myeloma [None]
  - Biopsy bone marrow abnormal [None]
  - Stem cell transplant [None]

NARRATIVE: CASE EVENT DATE: 20160214
